FAERS Safety Report 8559811-3 (Version None)
Quarter: 2012Q3

REPORT INFORMATION
  Report Type: 
  Country: None (occurrence: None)
  Receive Date: 20120802
  Receipt Date: 20120730
  Transmission Date: 20120928
  Serious: Yes (Other)
  Sender: FDA-Public Use
  Company Number: US-PFIZER INC-2012052345

PATIENT
  Sex: Female

DRUGS (8)
  1. FUROSEMIDE [Concomitant]
     Indication: CARDIAC DISORDER
     Dosage: UNK
     Dates: start: 20030101
  2. ASPIRIN [Concomitant]
     Indication: CARDIAC DISORDER
     Dosage: UNK
     Dates: start: 20030101
  3. AMLODIPINE [Concomitant]
     Indication: CARDIAC DISORDER
     Dosage: UNK
     Dates: start: 20030101
  4. LIPITOR [Concomitant]
     Indication: CARDIAC DISORDER
     Dosage: UNK
     Dates: start: 20030101
  5. ISOSORBIDE [Concomitant]
     Indication: CARDIAC DISORDER
     Dosage: UNK
     Dates: start: 20030101
  6. LISINOPRIL [Concomitant]
     Indication: CARDIAC DISORDER
     Dosage: UNK
     Dates: start: 20030101
  7. CHANTIX [Suspect]
     Indication: SMOKING CESSATION THERAPY
     Dosage: STARTER PACK
     Dates: start: 20080726, end: 20080826
  8. PLAVIX [Concomitant]
     Indication: CARDIAC DISORDER
     Dosage: UNK
     Dates: start: 20030101

REACTIONS (2)
  - DEPRESSION [None]
  - SUICIDAL IDEATION [None]
